FAERS Safety Report 9018830 (Version 2)
Quarter: 2013Q1

REPORT INFORMATION
  Report Type: Spontaneous
  Country: JP (occurrence: JP)
  Receive Date: 20130118
  Receipt Date: 20130131
  Transmission Date: 20140127
  Serious: Yes (Death)
  Sender: FDA-Public Use
  Company Number: JP-BAXTER-2013BAX001299

PATIENT
  Age: 74 Year
  Sex: Male

DRUGS (3)
  1. DIANEAL-N PD-4 2.5 PD SOLUTION [Suspect]
     Indication: DIABETIC NEPHROPATHY
     Route: 033
  2. DIANEAL-N PD-4 1.5 [Suspect]
     Indication: PERITONEAL LAVAGE
     Route: 033
  3. EXTRANEAL [Suspect]
     Indication: DIABETIC NEPHROPATHY
     Route: 033

REACTIONS (1)
  - Myocardial infarction [Fatal]
